FAERS Safety Report 5484371-3 (Version None)
Quarter: 2007Q4

REPORT INFORMATION
  Report Type: 
  Country: None (occurrence: None)
  Receive Date: 20071012
  Receipt Date: 20071009
  Transmission Date: 20080405
  Serious: Yes (Other)
  Sender: FDA-Public Use
  Company Number: US-GILEAD-2007-0011935

PATIENT
  Sex: Male

DRUGS (3)
  1. ATRIPLA [Suspect]
  2. PAXIL [Concomitant]
  3. ATIVAN [Concomitant]

REACTIONS (1)
  - PLATELET COUNT DECREASED [None]
